FAERS Safety Report 8108649 (Version 2)
Quarter: 2012Q4

REPORT INFORMATION
  Report Type: Spontaneous
  Country: US (occurrence: None)
  Receive Date: 20110816
  Receipt Date: 20121024
  Transmission Date: 20130627
  Serious: Yes (Death)
  Sender: FDA-Public Use
  Company Number: JPI-P-016097

PATIENT
  Age: 49 Year
  Sex: Male

DRUGS (4)
  1. LUVOX CR [Suspect]
     Indication: PRODUCT USED FOR UNKNOWN INDICATION
     Dosage: ORAL
     Route: 048
     Dates: start: 2011
  2. ZOLPIDEM TARTRATE [Concomitant]
  3. ALPRAZOLAM [Concomitant]
  4. BUSPIRONE HYDROCHLORIDE [Concomitant]

REACTIONS (1)
  - Death [None]
